FAERS Safety Report 14419771 (Version 1)
Quarter: 2018Q1

REPORT INFORMATION
  Report Type: Spontaneous
  Country: US (occurrence: US)
  Receive Date: 20180121
  Receipt Date: 20180121
  Transmission Date: 20180509
  Serious: Yes (Life-Threatening, Hospitalization, Disabling)
  Sender: FDA-Public Use
  Company Number: None

PATIENT
  Age: 82 Year
  Sex: Female
  Weight: 36 kg

DRUGS (10)
  1. APPETITE STIMULANT [Concomitant]
  2. HERBS [Concomitant]
     Active Substance: HERBALS
  3. ANTIBIOTICS [Concomitant]
     Active Substance: UNSPECIFIED INGREDIENT
  4. ANTI-DEPRESSANT [Concomitant]
     Active Substance: UNSPECIFIED INGREDIENT
  5. KEYTRUDA [Suspect]
     Active Substance: PEMBROLIZUMAB
     Indication: METASTASES TO LUNG
     Dosage: ?          OTHER FREQUENCY:EVERY 3 WEEKS;OTHER ROUTE:AS AN INFUSION?
     Dates: start: 20170502, end: 20171206
  6. SLEEPING PILLS [Concomitant]
     Active Substance: UNSPECIFIED INGREDIENT
  7. TURMERIC [Concomitant]
     Active Substance: HERBALS\TURMERIC
  8. PREDNISONE. [Concomitant]
     Active Substance: PREDNISONE
  9. OMEGA 3 FATTY ACIDS [Concomitant]
     Active Substance: OMEGA-3 FATTY ACIDS
  10. PROBIOTICS [Concomitant]
     Active Substance: PROBIOTICS NOS

REACTIONS (5)
  - Pain [None]
  - Autoimmune disorder [None]
  - Pemphigoid [None]
  - Wound [None]
  - Weight decreased [None]

NARRATIVE: CASE EVENT DATE: 20171215
